FAERS Safety Report 6557792-5 (Version None)
Quarter: 2010Q1

REPORT INFORMATION
  Report Type: 
  Country: None (occurrence: None)
  Receive Date: 20100129
  Receipt Date: 20100126
  Transmission Date: 20100710
  Serious: Yes (Other)
  Sender: FDA-Public Use
  Company Number: PHHY2009DE48034

PATIENT
  Sex: Female

DRUGS (2)
  1. FEMARA [Suspect]
     Indication: BREAST CANCER
     Dosage: 2.5 MG, QD
     Route: 048
     Dates: start: 20090422, end: 20091102
  2. THYREOTOM [Concomitant]
     Dosage: 1XDAILY
     Route: 048
     Dates: start: 20090106

REACTIONS (5)
  - DIZZINESS [None]
  - PAIN IN EXTREMITY [None]
  - VAGINAL INFLAMMATION [None]
  - VULVAR DYSPLASIA [None]
  - VULVOVAGINITIS [None]
